FAERS Safety Report 25783613 (Version 1)
Quarter: 2025Q3

REPORT INFORMATION
  Report Type: Spontaneous
  Country: US (occurrence: US)
  Receive Date: 20250910
  Receipt Date: 20250910
  Transmission Date: 20251020
  Serious: Yes (Hospitalization, Other)
  Sender: UNICHEM
  Company Number: US-UNICHEM LABORATORIES LIMITED-UNI-2025-US-003175

PATIENT

DRUGS (1)
  1. MONTELUKAST SODIUM [Suspect]
     Active Substance: MONTELUKAST SODIUM
     Indication: Chronic obstructive pulmonary disease
     Route: 048

REACTIONS (2)
  - Encephalopathy [Recovering/Resolving]
  - Off label use [Unknown]
